FAERS Safety Report 4577525-1 (Version None)
Quarter: 2005Q1

REPORT INFORMATION
  Report Type: 
  Country: None (occurrence: None)
  Receive Date: 20050208
  Receipt Date: 20050127
  Transmission Date: 20050727
  Serious: Yes (Other)
  Sender: FDA-Public Use
  Company Number: 200510083GDS

PATIENT
  Age: 92 Year
  Sex: Male

DRUGS (7)
  1. MOXIFLOXACIN HCL [Suspect]
     Indication: PNEUMONIA
     Dosage: 400 MG, TOTAL DAILY, ORAL
     Route: 048
  2. WARFARIN SODIUM [Suspect]
     Indication: ATRIAL FIBRILLATION
     Dosage: 3 MG, TOTAL DAILY
  3. FUROSEMIDE [Concomitant]
  4. CEFUROXIME [Concomitant]
  5. AZITHROMYCIN [Concomitant]
  6. CLINDAMYCIN [Concomitant]
  7. CITALOPRAM [Concomitant]

REACTIONS (3)
  - DRUG INTERACTION [None]
  - HAEMOGLOBIN DECREASED [None]
  - INTERNATIONAL NORMALISED RATIO INCREASED [None]
